FAERS Safety Report 15819053 (Version 2)
Quarter: 2020Q1

REPORT INFORMATION
  Report Type: Spontaneous
  Country: US (occurrence: US)
  Receive Date: 20190114
  Receipt Date: 20200225
  Transmission Date: 20200409
  Serious: No
  Sender: FDA-Public Use
  Company Number: US-ROCHE-2191261

PATIENT
  Age: 64 Year
  Sex: Female

DRUGS (2)
  1. NUTROPIN [Suspect]
     Active Substance: SOMATROPIN
     Indication: PRODUCT USED FOR UNKNOWN INDICATION
     Dosage: AQ NUSPIN 20 INJ
     Route: 065
     Dates: start: 201707
  2. NUTROPIN [Suspect]
     Active Substance: SOMATROPIN
     Dosage: NUSPIN 20 INJ
     Route: 065
     Dates: start: 201707

REACTIONS (2)
  - No adverse event [Unknown]
  - Product dose omission [Unknown]

NARRATIVE: CASE EVENT DATE: 20180926
